FAERS Safety Report 5219240-7 (Version None)
Quarter: 2007Q1

REPORT INFORMATION
  Report Type: 
  Country: None (occurrence: None)
  Receive Date: 20070124
  Receipt Date: 20070124
  Transmission Date: 20070707
  Serious: Yes (Other)
  Sender: FDA-Public Use
  Company Number: None

PATIENT
  Sex: Female
  Weight: 53.5244 kg

DRUGS (1)
  1. BONIVA [Suspect]
     Indication: OSTEOPOROSIS
     Dosage: 1/3 MOS  IV
     Route: 042
     Dates: start: 20060822

REACTIONS (3)
  - NO THERAPEUTIC RESPONSE [None]
  - UNEVALUABLE EVENT [None]
  - URINARY TRACT INFECTION [None]
